FAERS Safety Report 13813303 (Version 1)
Quarter: 2017Q3

REPORT INFORMATION
  Report Type: Spontaneous
  Country: RO (occurrence: RO)
  Receive Date: 20170729
  Receipt Date: 20170729
  Transmission Date: 20171127
  Serious: Yes (Death, Hospitalization, Other)
  Sender: FDA-Public Use
  Company Number: RO-MYLANLABS-2017M1045361

PATIENT

DRUGS (2)
  1. DACLIZUMAB [Suspect]
     Active Substance: DACLIZUMAB
     Indication: IMMUNOSUPPRESSANT DRUG THERAPY
     Route: 065
  2. TACROLIMUS. [Suspect]
     Active Substance: TACROLIMUS
     Indication: IMMUNOSUPPRESSANT DRUG THERAPY
     Route: 065

REACTIONS (8)
  - Sepsis [Fatal]
  - Subarachnoid haemorrhage [Recovering/Resolving]
  - Carotid artery aneurysm [Recovering/Resolving]
  - Hydrocephalus [Recovering/Resolving]
  - Shunt occlusion [Recovered/Resolved]
  - Hemiplegia [Unknown]
  - Cerebral vasoconstriction [Unknown]
  - Cerebral infarction [Unknown]
